FAERS Safety Report 6381361-3 (Version None)
Quarter: 2009Q3

REPORT INFORMATION
  Report Type: 
  Country: None (occurrence: None)
  Receive Date: 20090929
  Receipt Date: 20090921
  Transmission Date: 20100115
  Serious: Yes (Hospitalization, Other)
  Sender: FDA-Public Use
  Company Number: US-ASTRAZENECA-2009SE14372

PATIENT
  Age: 65 Year
  Sex: Female

DRUGS (4)
  1. CRESTOR [Suspect]
     Indication: BLOOD CHOLESTEROL INCREASED
     Route: 048
     Dates: start: 20050101
  2. ATENOLOL [Concomitant]
     Indication: BLOOD PRESSURE
  3. DILTIAZEM [Concomitant]
     Indication: NEURALGIA
  4. LEVOTHYROXINE SODIUM [Concomitant]
     Dates: start: 20080101

REACTIONS (3)
  - BASEDOW'S DISEASE [None]
  - FATIGUE [None]
  - THYROIDECTOMY [None]
